FAERS Safety Report 9905385 (Version 1)
Quarter: 2014Q1

REPORT INFORMATION
  Report Type: Spontaneous
  Country: JP (occurrence: JP)
  Receive Date: 20140218
  Receipt Date: 20140218
  Transmission Date: 20141002
  Serious: Yes (Other)
  Sender: FDA-Public Use
  Company Number: JP-SA-2014SA015239

PATIENT
  Age: 42 Year
  Sex: Female

DRUGS (2)
  1. DELLEGRA [Suspect]
     Indication: NASAL CONGESTION
     Route: 048
     Dates: start: 20131109, end: 201401
  2. DELLEGRA [Suspect]
     Indication: RHINITIS ALLERGIC
     Route: 048
     Dates: start: 20131109, end: 201401

REACTIONS (1)
  - Nephrotic syndrome [Recovering/Resolving]
